FAERS Safety Report 9664719 (Version 2)
Quarter: 2014Q1

REPORT INFORMATION
  Report Type: Report from Study
  Country: US (occurrence: US)
  Receive Date: 20131101
  Receipt Date: 20140130
  Transmission Date: 20141002
  Serious: Yes (Hospitalization, Other)
  Sender: FDA-Public Use
  Company Number: US-TEVA-441580USA

PATIENT
  Age: 13 Year
  Sex: Female

DRUGS (1)
  1. CLARAVIS [Suspect]
     Indication: PINEALOBLASTOMA

REACTIONS (3)
  - Self injurious behaviour [Recovered/Resolved]
  - Psychotic disorder [Recovering/Resolving]
  - Affect lability [Unknown]
